FAERS Safety Report 5116898-8 (Version None)
Quarter: 2006Q3

REPORT INFORMATION
  Report Type: 
  Country: None (occurrence: None)
  Receive Date: 20060925
  Receipt Date: 20050901
  Transmission Date: 20061208
  Serious: Yes (Death)
  Sender: FDA-Public Use
  Company Number: 2005BH001991

PATIENT

DRUGS (7)
  1. DEXAMETHASONE TAB [Suspect]
     Indication: NON-HODGKIN'S LYMPHOMA
     Dosage: 40 MG; IV
     Route: 042
  2. ETOPOSIDE [Suspect]
     Indication: NON-HODGKIN'S LYMPHOMA
     Dosage: 100 MG/M**2; IV
     Route: 042
  3. IFOSFAMIDE [Suspect]
     Indication: NON-HODGKIN'S LYMPHOMA
     Dosage: 1000 MG/M**2; IV
     Route: 042
  4. MITOXANTRONE GENERIC (MITOXANTRONE) [Suspect]
     Indication: NON-HODGKIN'S LYMPHOMA
     Dosage: 10 MG/M**2; EVERY 3 WK; IV
     Route: 042
  5. UROMITEXAN BAXTER (MESNA) [Suspect]
     Indication: NON-HODGKIN'S LYMPHOMA
     Dosage: 20 PCT; IV
     Route: 042
  6. METHYLGLYOXAL (NO PREF. NAME) [Suspect]
     Indication: NON-HODGKIN'S LYMPHOMA
     Dosage: 100 MG/M**2; IV
     Route: 042
  7. NEUPOGEN [Suspect]
     Indication: NON-HODGKIN'S LYMPHOMA
     Dosage: 5 UG/KG; IV
     Route: 042

REACTIONS (1)
  - INFECTION [None]
